FAERS Safety Report 15810850 (Version 1)
Quarter: 2019Q1

REPORT INFORMATION
  Report Type: Spontaneous
  Country: US (occurrence: US)
  Receive Date: 20190111
  Receipt Date: 20190111
  Transmission Date: 20190417
  Serious: Yes (Death)
  Sender: FDA-Public Use
  Company Number: US-JNJFOC-20190101193

PATIENT
  Age: 64 Year
  Sex: Female

DRUGS (7)
  1. MELOXICAM. [Suspect]
     Active Substance: MELOXICAM
     Indication: SUICIDE ATTEMPT
     Route: 048
  2. IBUPROFEN. [Suspect]
     Active Substance: IBUPROFEN
     Indication: SUICIDE ATTEMPT
     Route: 048
  3. ACETAMINOPHEN W/OXYCODONE [Suspect]
     Active Substance: ACETAMINOPHEN\OXYCODONE HYDROCHLORIDE
     Indication: SUICIDE ATTEMPT
     Route: 048
  4. NAPROXEN. [Suspect]
     Active Substance: NAPROXEN
     Indication: SUICIDE ATTEMPT
     Route: 048
  5. CALCIUM [Suspect]
     Active Substance: CALCIUM
     Indication: SUICIDE ATTEMPT
     Route: 048
  6. VENLAFAXINE [Suspect]
     Active Substance: VENLAFAXINE HYDROCHLORIDE
     Indication: SUICIDE ATTEMPT
     Route: 048
  7. IBUPROFEN. [Suspect]
     Active Substance: IBUPROFEN
     Route: 048

REACTIONS (1)
  - Toxicity to various agents [Fatal]
